FAERS Safety Report 25747853 (Version 3)
Quarter: 2025Q4

REPORT INFORMATION
  Report Type: Spontaneous
  Country: EG (occurrence: EG)
  Receive Date: 20250901
  Receipt Date: 20251023
  Transmission Date: 20260117
  Serious: Yes (Hospitalization, Other)
  Sender: NOVARTIS
  Company Number: EG-002147023-NVSC2025EG129527

PATIENT
  Sex: Male

DRUGS (1)
  1. ELTROMBOPAG OLAMINE [Suspect]
     Active Substance: ELTROMBOPAG OLAMINE
     Indication: Platelet count decreased
     Dosage: UNK
     Route: 065
     Dates: start: 2021

REACTIONS (14)
  - Anaemia [Unknown]
  - Platelet count decreased [Unknown]
  - Haemoptysis [Unknown]
  - Body temperature increased [Unknown]
  - Pneumonia [Unknown]
  - Thrombocytopenia [Unknown]
  - Lymphopenia [Unknown]
  - Mouth ulceration [Not Recovered/Not Resolved]
  - Rash macular [Not Recovered/Not Resolved]
  - Haemorrhage [Unknown]
  - Hypochromic anaemia [Unknown]
  - Anisocytosis [Unknown]
  - Neutrophilia [Unknown]
  - Leukocytosis [Unknown]

NARRATIVE: CASE EVENT DATE: 20210101
